FAERS Safety Report 24220786 (Version 1)
Quarter: 2024Q3

REPORT INFORMATION
  Report Type: Spontaneous
  Country: CN (occurrence: CN)
  Receive Date: 20240818
  Receipt Date: 20240818
  Transmission Date: 20241017
  Serious: Yes (Life-Threatening, Other)
  Sender: JOHNSON AND JOHNSON
  Company Number: CN-BAYER-2024A118107

PATIENT
  Age: 87 Year
  Sex: Female
  Weight: 50 kg

DRUGS (2)
  1. XARELTO [Suspect]
     Active Substance: RIVAROXABAN
     Indication: Cor pulmonale
     Dosage: 15 MG, QD
     Route: 048
     Dates: start: 20240212, end: 20240811
  2. XARELTO [Suspect]
     Active Substance: RIVAROXABAN
     Indication: Anticoagulant therapy
     Route: 048

REACTIONS (5)
  - Coagulopathy [Recovering/Resolving]
  - Depressed mood [Unknown]
  - Asthenia [Unknown]
  - Ecchymosis [Unknown]
  - Off label use [Unknown]

NARRATIVE: CASE EVENT DATE: 20240212
